FAERS Safety Report 10180863 (Version 1)
Quarter: 2014Q2

REPORT INFORMATION
  Report Type: Spontaneous
  Country: US (occurrence: US)
  Receive Date: 20140519
  Receipt Date: 20140519
  Transmission Date: 20141212
  Serious: No
  Sender: FDA-Public Use
  Company Number: US-AMGEN INC.-USASP2014013380

PATIENT
  Age: 79 Year
  Sex: Female

DRUGS (4)
  1. PROLIA [Suspect]
     Indication: OSTEOPOROSIS POSTMENOPAUSAL
     Route: 065
  2. SIMVASTATIN [Concomitant]
     Indication: BLOOD CHOLESTEROL INCREASED
     Dosage: 20 MG, QD
  3. BISOPROLOL HCT [Concomitant]
     Dosage: 10MG/6.25MG
  4. LEVOTHYROXINE [Concomitant]
     Dosage: 0.5 MG, UNK

REACTIONS (2)
  - Mobility decreased [Not Recovered/Not Resolved]
  - Pain in extremity [Not Recovered/Not Resolved]
